FAERS Safety Report 13682732 (Version 1)
Quarter: 2017Q2

REPORT INFORMATION
  Report Type: Spontaneous
  Country: US (occurrence: US)
  Receive Date: 20170623
  Receipt Date: 20170623
  Transmission Date: 20170830
  Serious: No
  Sender: FDA-Public Use
  Company Number: US-MALLINCKRODT-T201605810

PATIENT
  Age: 57 Year
  Sex: Female

DRUGS (20)
  1. H.P. ACTHAR [Suspect]
     Active Substance: CORTICOTROPIN
     Indication: SARCOIDOSIS
     Dosage: 80 UNITS 2 TIMES A WEEK (MON. AND THURS.)
     Route: 058
     Dates: start: 20161010
  2. AZELASTINE [Concomitant]
     Active Substance: AZELASTINE
     Dosage: SPR 0.15%
  3. JANUVIA [Concomitant]
     Active Substance: SITAGLIPTIN PHOSPHATE
     Dosage: TAB 50 MG
  4. OPHEN [Concomitant]
  5. LEVOFLOXACIN. [Concomitant]
     Active Substance: LEVOFLOXACIN
  6. IMODIUM A-D [Concomitant]
     Active Substance: LOPERAMIDE HYDROCHLORIDE
     Dosage: CAP 2 MG
  7. ADCIRCA [Concomitant]
     Active Substance: TADALAFIL
  8. BREO ELLIPTA [Concomitant]
     Active Substance: FLUTICASONE FUROATE\VILANTEROL TRIFENATATE
     Dosage: INH 200-25
  9. CETRIZINE [Concomitant]
     Active Substance: CETIRIZINE HYDROCHLORIDE
     Dosage: TAB 10 MG
  10. LEVOCETRIN [Concomitant]
  11. HYDROCODONE/ACETAMINOPHEN [Concomitant]
     Active Substance: ACETAMINOPHEN\HYDROCODONE
  12. NYSTATIN. [Concomitant]
     Active Substance: NYSTATIN
  13. CALCIUM + D3 [Concomitant]
     Active Substance: CALCIUM\CHOLECALCIFEROL
     Dosage: TAB 600 MG
  14. FUROSEMIDE. [Concomitant]
     Active Substance: FUROSEMIDE
     Dosage: TAB 40 MG
  15. IPRATROPIUM W/SALBUTAMOL [Concomitant]
  16. CLOTRIMAZOLE. [Concomitant]
     Active Substance: CLOTRIMAZOLE
     Dosage: 10 MG
  17. AZITHROMYCIN ANHYDROUS. [Concomitant]
     Active Substance: AZITHROMYCIN ANHYDROUS
  18. HUMALOG [Concomitant]
     Active Substance: INSULIN LISPRO
     Dosage: INJ 100/ ML
  19. PREDNISONE. [Concomitant]
     Active Substance: PREDNISONE
  20. MOFETILMIKOFENOLAT [Concomitant]

REACTIONS (10)
  - Diarrhoea [Unknown]
  - Injection site bruising [Not Recovered/Not Resolved]
  - Swelling [Unknown]
  - Blood calcium increased [Not Recovered/Not Resolved]
  - Fatigue [Unknown]
  - Vomiting [Not Recovered/Not Resolved]
  - Headache [Not Recovered/Not Resolved]
  - Flushing [Unknown]
  - Pain [Unknown]
  - Injection site haemorrhage [Not Recovered/Not Resolved]

NARRATIVE: CASE EVENT DATE: 20161105
